FAERS Safety Report 7039615-3 (Version None)
Quarter: 2010Q4

REPORT INFORMATION
  Report Type: 
  Country: None (occurrence: None)
  Receive Date: 20101012
  Receipt Date: 20101005
  Transmission Date: 20110411
  Serious: Yes (Hospitalization, Disabling, Other)
  Sender: FDA-Public Use
  Company Number: A0880316A

PATIENT
  Age: 62 Year
  Sex: Female

DRUGS (2)
  1. ALKERAN [Suspect]
     Dosage: 1INJ SINGLE DOSE
     Route: 042
     Dates: start: 20100518, end: 20100518
  2. NO CONCURRENT MEDICATION [Concomitant]

REACTIONS (1)
  - MYOCLONUS [None]
